FAERS Safety Report 9025339 (Version 2)
Quarter: 2013Q3

REPORT INFORMATION
  Report Type: Report from Study
  Country: US (occurrence: US)
  Receive Date: 20121211
  Receipt Date: 20130903
  Transmission Date: 20140515
  Serious: Yes (Life-Threatening, Hospitalization)
  Sender: FDA-Public Use
  Company Number: PHEH2012US019041

PATIENT
  Age: 58 Year
  Sex: Female

DRUGS (8)
  1. TASIGNA [Suspect]
     Indication: CHRONIC MYELOID LEUKAEMIA
     Dosage: 300 MG, BID
     Route: 048
     Dates: start: 201004
  2. DEPAKOTE [Suspect]
  3. SERTRALINE [Concomitant]
  4. AMBIEN [Concomitant]
  5. HYDROXYUREA [Concomitant]
  6. PROTONIX [Concomitant]
  7. KLONOPIN [Concomitant]
  8. CLARITIN [Concomitant]

REACTIONS (12)
  - Hepatic failure [Recovering/Resolving]
  - Renal failure [Recovering/Resolving]
  - Hepatitis acute [Recovering/Resolving]
  - Blood alkaline phosphatase increased [Recovering/Resolving]
  - Cholestasis [Recovering/Resolving]
  - Hepatic necrosis [Recovering/Resolving]
  - Alanine aminotransferase increased [Recovering/Resolving]
  - Aspartate aminotransferase increased [Recovering/Resolving]
  - Electrocardiogram abnormal [Unknown]
  - Palpitations [Unknown]
  - Headache [Unknown]
  - Ocular icterus [Unknown]
